FAERS Safety Report 18222979 (Version 3)
Quarter: 2020Q4

REPORT INFORMATION
  Report Type: Report from Study
  Country: US (occurrence: US)
  Receive Date: 20200902
  Receipt Date: 20201205
  Transmission Date: 20210113
  Serious: No
  Sender: FDA-Public Use
  Company Number: NVSC2020US234409

PATIENT
  Age: 66 Year
  Sex: Female

DRUGS (1)
  1. GLATOPA [Suspect]
     Active Substance: GLATIRAMER ACETATE
     Indication: PRODUCT USED FOR UNKNOWN INDICATION
     Dosage: 40 MG, Q3W
     Route: 065

REACTIONS (1)
  - Injection site pain [Unknown]
